FAERS Safety Report 15974865 (Version 1)
Quarter: 2019Q1

REPORT INFORMATION
  Report Type: Spontaneous
  Country: CH (occurrence: CH)
  Receive Date: 20190218
  Receipt Date: 20190218
  Transmission Date: 20190418
  Serious: Yes (Other)
  Sender: FDA-Public Use
  Company Number: CH-ROCHE-1931760

PATIENT
  Sex: Male

DRUGS (4)
  1. GAZYVARO [Suspect]
     Active Substance: OBINUTUZUMAB
     Indication: B-CELL LYMPHOMA
     Route: 042
  2. MABTHERA [Suspect]
     Active Substance: RITUXIMAB
     Indication: B-CELL LYMPHOMA
     Dosage: MAINTENAANCE THERAPY
     Route: 065
     Dates: start: 20150710, end: 20161216
  3. MABTHERA [Suspect]
     Active Substance: RITUXIMAB
     Route: 065
     Dates: start: 20150327, end: 20150622
  4. RIBOMUSTIN [Concomitant]
     Active Substance: BENDAMUSTINE HYDROCHLORIDE
     Indication: B-CELL LYMPHOMA
     Route: 042

REACTIONS (3)
  - Intentional product use issue [Unknown]
  - B-cell lymphoma [Unknown]
  - Off label use [Unknown]
